FAERS Safety Report 8960591 (Version 1)
Quarter: 2012Q4

REPORT INFORMATION
  Report Type: Spontaneous
  Country: US (occurrence: None)
  Receive Date: 20121130
  Receipt Date: 20121130
  Transmission Date: 20130627
  Serious: Yes (Death, Other)
  Sender: FDA-Public Use
  Company Number: TPA2012A04720

PATIENT
  Age: 63 Year
  Sex: Male
  Weight: 81.65 kg

DRUGS (6)
  1. ACTOS (PIOGLITAZONE HYDROCHLORIDE) [Suspect]
     Indication: TYPE 2 DIABETES MELLITUS
     Dates: start: 2005, end: 201107
  2. METFORMIN (METFORMIN) [Concomitant]
  3. LISPRO (INSULIN LISPRO) [Concomitant]
  4. LANTUS (INSULIN GLARGINE) [Concomitant]
  5. LEVEMIR (INSULIN DETEMIR) [Concomitant]
  6. INSULIN (INSULIN) [Concomitant]

REACTIONS (1)
  - Bladder cancer [None]
